FAERS Safety Report 6603969-X (Version None)
Quarter: 2010Q1

REPORT INFORMATION
  Report Type: 
  Country: None (occurrence: None)
  Receive Date: 20100226
  Receipt Date: 20090330
  Transmission Date: 20100710
  Serious: No
  Sender: FDA-Public Use
  Company Number: A0776174A

PATIENT
  Sex: Male

DRUGS (3)
  1. LAMICTAL CD [Suspect]
     Route: 048
  2. WELLBUTRIN [Suspect]
     Route: 048
  3. ABILIFY [Concomitant]

REACTIONS (1)
  - COUGH [None]
